FAERS Safety Report 8102597-7 (Version None)
Quarter: 2012Q1

REPORT INFORMATION
  Report Type: 
  Country: None (occurrence: None)
  Receive Date: 20120201
  Receipt Date: 20120125
  Transmission Date: 20120608
  Serious: Yes (Other)
  Sender: FDA-Public Use
  Company Number: US-JNJFOC-20111204776

PATIENT
  Sex: Male
  Weight: 90.72 kg

DRUGS (7)
  1. PREDNISONE TAB [Concomitant]
     Indication: RHEUMATOID ARTHRITIS
     Route: 048
  2. FENTANYL-100 [Suspect]
     Indication: ARTHRITIS
     Route: 062
     Dates: start: 20101118
  3. METHOTREXATE [Concomitant]
     Indication: RHEUMATOID ARTHRITIS
     Route: 058
  4. LIPITOR [Concomitant]
     Indication: BLOOD CHOLESTEROL INCREASED
     Route: 048
  5. LISINOPRIL AND HYDROCHLOROTHIAZIDE [Concomitant]
     Indication: HYPERTENSION
     Dosage: 10-12.5 MG
     Route: 048
  6. NORCO [Concomitant]
     Indication: PAIN
     Dosage: 10-325 MG
     Route: 048
  7. OMEPRAZOLE [Concomitant]
     Indication: GASTROOESOPHAGEAL REFLUX DISEASE
     Route: 048
     Dates: start: 20070101

REACTIONS (6)
  - ANGIOPATHY [None]
  - CHEST PAIN [None]
  - SINUSITIS [None]
  - DYSURIA [None]
  - NIGHTMARE [None]
  - NODULE [None]
